FAERS Safety Report 16325080 (Version 1)
Quarter: 2019Q2

REPORT INFORMATION
  Report Type: Spontaneous
  Country: US (occurrence: US)
  Receive Date: 20190517
  Receipt Date: 20190517
  Transmission Date: 20190711
  Serious: Yes (Other)
  Sender: FDA-Public Use
  Company Number: US-PFIZER INC-2019210982

PATIENT
  Age: 84 Year
  Sex: Male

DRUGS (4)
  1. VYNDAQEL [Suspect]
     Active Substance: TAFAMIDIS MEGLUMINE
     Indication: AMYLOIDOSIS
     Dosage: 80 MG, UNK
  2. ASA [Concomitant]
     Active Substance: ASPIRIN
     Dosage: UNK (8LD)
  3. METFORMIN [Concomitant]
     Active Substance: METFORMIN HYDROCHLORIDE
     Dosage: UNK (500 8LD)
  4. CRESTOR [Concomitant]
     Active Substance: ROSUVASTATIN CALCIUM
     Dosage: UNK (10LD)

REACTIONS (7)
  - Type 2 diabetes mellitus [Unknown]
  - Atrioventricular block [Unknown]
  - Gastrooesophageal reflux disease [Unknown]
  - Chronic kidney disease [Unknown]
  - Coronary artery disease [Unknown]
  - Hyperlipidaemia [Unknown]
  - Hypertension [Unknown]
